FAERS Safety Report 5092633-7 (Version None)
Quarter: 2006Q3

REPORT INFORMATION
  Report Type: 
  Country: None (occurrence: None)
  Receive Date: 20060727
  Receipt Date: 20060607
  Transmission Date: 20061208
  Serious: Yes (Other)
  Sender: FDA-Public Use
  Company Number: 2006074109

PATIENT
  Age: 47 Year
  Sex: Male

DRUGS (7)
  1. LYRICA [Suspect]
     Indication: DIABETIC NEUROPATHY
     Dosage: 150 MG (75 MG, 2 IN 1 D), ORAL
     Route: 048
  2. LISINOPRIL [Concomitant]
  3. MAXALT [Concomitant]
  4. ALLEGRA [Concomitant]
  5. ZANAFLEX [Concomitant]
  6. NYSTATIN POWDER (NYSTATIN) [Concomitant]
  7. AMBIEN [Concomitant]

REACTIONS (1)
  - DRUG INEFFECTIVE [None]
